FAERS Safety Report 25892073 (Version 1)
Quarter: 2025Q4

REPORT INFORMATION
  Report Type: Spontaneous
  Country: JP (occurrence: JP)
  Receive Date: 20251007
  Receipt Date: 20251007
  Transmission Date: 20260117
  Serious: Yes (Hospitalization)
  Sender: ABBVIE
  Company Number: JP-ABBVIE-6388510

PATIENT
  Age: 78 Year
  Sex: Female
  Weight: 60 kg

DRUGS (20)
  1. RINVOQ [Suspect]
     Active Substance: UPADACITINIB
     Indication: Rheumatoid arthritis
     Dosage: FORM STRENGTH: 7.5 MILLIGRAM
     Route: 048
     Dates: start: 20250624, end: 20250626
  2. RINVOQ [Suspect]
     Active Substance: UPADACITINIB
     Indication: Rheumatoid arthritis
     Dosage: FORM STRENGTH: 7.5 MILLIGRAM
     Route: 048
     Dates: start: 20240327
  3. RINVOQ [Suspect]
     Active Substance: UPADACITINIB
     Indication: Rheumatoid arthritis
     Dosage: FORM STRENGTH: 7.5 MILLIGRAM
     Route: 048
     Dates: start: 20220221, end: 20231230
  4. LASIX [Concomitant]
     Active Substance: FUROSEMIDE
     Indication: Ascites
     Dosage: FORM STRENGTH: 40 MILLIGRAM
     Dates: start: 20250624, end: 20250702
  5. VONOPRAZAN FUMARATE [Concomitant]
     Active Substance: VONOPRAZAN FUMARATE
     Indication: Product used for unknown indication
     Dosage: FORM STRENGTH: 10 MILLIGRAM
     Route: 048
     Dates: start: 20250624, end: 20250702
  6. LACTULOSE [Concomitant]
     Active Substance: LACTULOSE
     Indication: Hepatic encephalopathy
     Dosage: TIME INTERVAL: 0.33333333 DAYS: 30 ML
     Route: 048
     Dates: start: 20250624, end: 20250624
  7. RYZODEG 70/30 [Concomitant]
     Active Substance: INSULIN ASPART\INSULIN DEGLUDEC
     Indication: Product used for unknown indication
     Route: 058
     Dates: start: 20250624, end: 20250624
  8. KETOPROFEN [Concomitant]
     Active Substance: KETOPROFEN
     Indication: Product used for unknown indication
     Route: 062
     Dates: start: 20250624, end: 20250702
  9. KETOPROFEN [Concomitant]
     Active Substance: KETOPROFEN
     Indication: Product used for unknown indication
     Route: 062
     Dates: start: 20250624, end: 20250702
  10. ALFACALCIDOL [Concomitant]
     Active Substance: ALFACALCIDOL
     Indication: Product used for unknown indication
     Route: 048
     Dates: start: 20250624, end: 20250702
  11. ALFACALCIDOL [Concomitant]
     Active Substance: ALFACALCIDOL
     Indication: Product used for unknown indication
     Dosage: FORM STRENGTH: 0.25 MICROGRAM
     Route: 048
     Dates: start: 20250624, end: 20250702
  12. RIFAXIMIN [Concomitant]
     Active Substance: RIFAXIMIN
     Indication: Product used for unknown indication
     Dosage: FORM STRENGTH: 200 MILLIGRAM
     Route: 048
     Dates: end: 20250702
  13. LINAGLIPTIN [Concomitant]
     Active Substance: LINAGLIPTIN
     Indication: Product used for unknown indication
     Dosage: FORM STRENGTH: 5 MILLIGRAM
     Route: 048
     Dates: start: 20250624, end: 20250702
  14. AMLODIPINE BESYLATE [Concomitant]
     Active Substance: AMLODIPINE BESYLATE
     Indication: Product used for unknown indication
     Dosage: 5 MILLIGRAM
     Route: 048
     Dates: start: 20250624, end: 20250702
  15. AMLODIPINE BESYLATE [Concomitant]
     Active Substance: AMLODIPINE BESYLATE
     Indication: Product used for unknown indication
     Dosage: FORM STRENGTH: 5 MILLIGRAM
     Route: 048
     Dates: start: 20250624, end: 20250702
  16. L-Isoleucine [Concomitant]
     Indication: Hepatic failure
     Dosage: 0.33333333 DAYS 3 SACHETS
     Route: 048
     Dates: start: 20250624, end: 20250702
  17. PREDNISOLONE [Concomitant]
     Active Substance: PREDNISOLONE
     Indication: Rheumatoid arthritis
     Route: 048
     Dates: start: 2015, end: 2023
  18. SPIRONOLACTONE [Concomitant]
     Active Substance: SPIRONOLACTONE
     Indication: Product used for unknown indication
     Dosage: 25 MILLIGRAM
     Route: 048
     Dates: start: 20250624, end: 20250702
  19. L-Leucine [Concomitant]
     Indication: Hepatic failure
     Dosage: 0.33333333 DAYS 3 SACHET
     Route: 048
     Dates: start: 20250624, end: 20250702
  20. L-Valine [Concomitant]
     Indication: Hepatic failure
     Dosage: 0.33333333 DAYS 3 SACHETS
     Route: 048
     Dates: start: 20250624, end: 20250702

REACTIONS (7)
  - Infection susceptibility increased [Recovered/Resolved]
  - Neutrophil count decreased [Recovering/Resolving]
  - Pneumonia [Recovered/Resolved]
  - Lymphocyte count decreased [Recovering/Resolving]
  - Anaemia [Not Recovered/Not Resolved]
  - Inflammation [Recovering/Resolving]
  - Urinary tract infection [Unknown]

NARRATIVE: CASE EVENT DATE: 20250101
